FAERS Safety Report 11076295 (Version 1)
Quarter: 2015Q2

REPORT INFORMATION
  Report Type: Spontaneous
  Country: ES (occurrence: ES)
  Receive Date: 20150429
  Receipt Date: 20150429
  Transmission Date: 20150821
  Serious: Yes (Hospitalization)
  Sender: FDA-Public Use
  Company Number: ES-AUROBINDO-AUR-APL-2015-03647

PATIENT
  Age: 87 Year
  Sex: Female

DRUGS (2)
  1. FOSFOMYCIN [Suspect]
     Active Substance: FOSFOMYCIN
     Indication: URINARY TRACT INFECTION
     Dosage: UNK
     Route: 065
  2. AMOXICILLIN+CLAVULANIC ACID [Suspect]
     Active Substance: AMOXICILLIN\CLAVULANIC ACID
     Indication: URINARY TRACT INFECTION
     Dosage: UNK
     Route: 065

REACTIONS (16)
  - Condition aggravated [Recovering/Resolving]
  - Rash [Recovering/Resolving]
  - Oedema [Recovering/Resolving]
  - Palatal disorder [Recovering/Resolving]
  - Nikolsky^s sign [Recovering/Resolving]
  - Pruritus [Recovering/Resolving]
  - Rash maculo-papular [Recovering/Resolving]
  - Erythema [Recovering/Resolving]
  - Acute kidney injury [Recovering/Resolving]
  - Acute generalised exanthematous pustulosis [Recovering/Resolving]
  - General physical health deterioration [Recovering/Resolving]
  - Dermatitis exfoliative generalised [Recovering/Resolving]
  - Mucosal inflammation [Recovering/Resolving]
  - Rash erythematous [Recovering/Resolving]
  - Rash pustular [Recovering/Resolving]
  - Skin exfoliation [Recovering/Resolving]
